FAERS Safety Report 11996294 (Version 1)
Quarter: 2016Q1

REPORT INFORMATION
  Report Type: Report from Study
  Country: US (occurrence: US)
  Receive Date: 20160203
  Receipt Date: 20160203
  Transmission Date: 20160526
  Serious: Yes (Hospitalization)
  Sender: FDA-Public Use
  Company Number: US-JACOBUS PHARMACEUTICAL COMPANY, INC.-1047276

PATIENT
  Age: 64 Year
  Sex: Female
  Weight: 69 kg

DRUGS (21)
  1. BASILIXIMAB [Suspect]
     Active Substance: BASILIXIMAB
     Route: 042
     Dates: start: 20130825
  2. ATORVASTATIN [Concomitant]
     Active Substance: ATORVASTATIN
  3. SYNTHROID [Concomitant]
     Active Substance: LEVOTHYROXINE SODIUM
  4. TACROLIMUS. [Suspect]
     Active Substance: TACROLIMUS
     Route: 048
     Dates: start: 20141016
  5. PREDNISONE. [Concomitant]
     Active Substance: PREDNISONE
  6. FLONASE [Concomitant]
     Active Substance: FLUTICASONE PROPIONATE
  7. ALBUTEROL. [Concomitant]
     Active Substance: ALBUTEROL
  8. DAPSONE. [Suspect]
     Active Substance: DAPSONE
  9. MYCOPHENOLATE MOFETIL. [Suspect]
     Active Substance: MYCOPHENOLATE MOFETIL
     Dates: start: 20130825, end: 20130825
  10. NORVASC [Concomitant]
     Active Substance: AMLODIPINE BESYLATE
  11. ZOFRAN [Concomitant]
     Active Substance: ONDANSETRON HYDROCHLORIDE
  12. INSULIN [Concomitant]
     Active Substance: INSULIN NOS
  13. DAPSONE. [Suspect]
     Active Substance: DAPSONE
  14. ALLEGRA [Concomitant]
     Active Substance: FEXOFENADINE HYDROCHLORIDE
  15. TACROLIMUS. [Suspect]
     Active Substance: TACROLIMUS
     Route: 048
     Dates: start: 20130827
  16. PROTONIX [Concomitant]
     Active Substance: PANTOPRAZOLE SODIUM
  17. DELTASONE [Concomitant]
     Active Substance: PREDNISONE
  18. INSULIN ASPART [Concomitant]
     Active Substance: INSULIN ASPART
  19. ASKP1240 [Suspect]
     Active Substance: BLESELUMAB
     Route: 042
     Dates: start: 20130825
  20. METOPROLOL SUCCINATE. [Concomitant]
     Active Substance: METOPROLOL SUCCINATE
  21. ADVAIR HFA [Concomitant]
     Active Substance: FLUTICASONE PROPIONATE\SALMETEROL XINAFOATE

REACTIONS (3)
  - Nausea [Recovered/Resolved with Sequelae]
  - Dehydration [Recovered/Resolved with Sequelae]
  - Adenocarcinoma [Unknown]

NARRATIVE: CASE EVENT DATE: 20141015
